FAERS Safety Report 10232801 (Version 2)
Quarter: 2014Q3

REPORT INFORMATION
  Report Type: Report from Study
  Country: GR (occurrence: GR)
  Receive Date: 20140612
  Receipt Date: 20140923
  Transmission Date: 20150326
  Serious: Yes (Hospitalization, Other)
  Sender: FDA-Public Use
  Company Number: GR-SA-2014SA071181

PATIENT
  Age: 74 Year
  Sex: Female
  Weight: 54 kg

DRUGS (6)
  1. LEUCOVORIN [Suspect]
     Active Substance: LEUCOVORIN
     Indication: COLON NEOPLASM
     Dosage: FREQUENCY: Q 15
     Route: 042
     Dates: start: 20140526, end: 20140526
  2. 5-FU [Suspect]
     Active Substance: FLUOROURACIL
     Indication: COLON NEOPLASM
     Dosage: IV INFUSION; FREQUENCY: Q15
     Route: 041
     Dates: start: 20140526
  3. AFLIBERCEPT [Suspect]
     Active Substance: AFLIBERCEPT
     Indication: COLON NEOPLASM
     Dosage: FREQUENCY: Q 15 DAYS
     Route: 042
     Dates: start: 20140526, end: 20140526
  4. 5-FU [Suspect]
     Active Substance: FLUOROURACIL
     Indication: COLON NEOPLASM
     Dosage: IV INFUSION; FREQUENCY: Q15
     Route: 065
     Dates: start: 20140527, end: 20140527
  5. IRINOTECAN [Suspect]
     Active Substance: IRINOTECAN
     Indication: COLON NEOPLASM
     Dosage: FREQUENCY: Q 15 DAYS
     Route: 041
     Dates: start: 20140526, end: 20140526
  6. 5-FU [Suspect]
     Active Substance: FLUOROURACIL
     Indication: COLON NEOPLASM
     Dosage: FREQUENCY: Q15 DAYS
     Route: 040
     Dates: start: 20140526, end: 20140526

REACTIONS (1)
  - Acute coronary syndrome [Recovered/Resolved]

NARRATIVE: CASE EVENT DATE: 20140527
